FAERS Safety Report 8443978-1 (Version None)
Quarter: 2012Q2

REPORT INFORMATION
  Report Type: 
  Country: None (occurrence: None)
  Receive Date: 20120618
  Receipt Date: 20120611
  Transmission Date: 20120825
  Serious: Yes (Disabling, Other)
  Sender: FDA-Public Use
  Company Number: PHBS2003NZ13647

PATIENT
  Sex: Male
  Weight: 121 kg

DRUGS (5)
  1. SIMVASTATIN [Concomitant]
     Route: 065
  2. CLOZARIL [Suspect]
     Indication: SCHIZOPHRENIA
     Dosage: 500 MG, QD
     Route: 048
     Dates: start: 20021001, end: 20111201
  3. INSULIN PROTAPHAN HUMAN [Concomitant]
     Route: 065
  4. VALPROATE SODIUM [Concomitant]
     Dosage: 600 MG, BID
     Route: 065
     Dates: start: 20030828
  5. RANITIDINE [Concomitant]
     Route: 065

REACTIONS (16)
  - METABOLIC SYNDROME [None]
  - COUGH [None]
  - DYSPNOEA [None]
  - PALPITATIONS [None]
  - FATIGUE [None]
  - BLOOD CHOLESTEROL INCREASED [None]
  - HYPERTRIGLYCERIDAEMIA [None]
  - TYPE 2 DIABETES MELLITUS [None]
  - LETHARGY [None]
  - WEIGHT INCREASED [None]
  - HYPERGLYCAEMIA [None]
  - SEDATION [None]
  - BLOOD GLUCOSE INCREASED [None]
  - BLOOD TRIGLYCERIDES INCREASED [None]
  - DYSPEPSIA [None]
  - MUSCLE SPASMS [None]
